FAERS Safety Report 11242664 (Version 2)
Quarter: 2015Q3

REPORT INFORMATION
  Report Type: Report from Study
  Country: BR (occurrence: BR)
  Receive Date: 20150707
  Receipt Date: 20150731
  Transmission Date: 20151125
  Serious: Yes (Other)
  Sender: FDA-Public Use
  Company Number: PHHY2015BR077836

PATIENT
  Sex: Female
  Weight: 67 kg

DRUGS (2)
  1. GILENYA [Suspect]
     Active Substance: FINGOLIMOD HYDROCHLORIDE
     Dosage: UNK
     Route: 048
     Dates: start: 201506
  2. GILENYA [Suspect]
     Active Substance: FINGOLIMOD HYDROCHLORIDE
     Indication: MULTIPLE SCLEROSIS
     Dosage: 0.5 MG (1 CAPSULE), QHS
     Route: 048
     Dates: start: 201307, end: 201502

REACTIONS (5)
  - Metastases to lymph nodes [Recovering/Resolving]
  - Pelvic neoplasm [Recovering/Resolving]
  - Breast cancer [Recovering/Resolving]
  - Gastric cancer [Recovering/Resolving]
  - Hepatic cancer [Recovering/Resolving]
